FAERS Safety Report 9481452 (Version 2)
Quarter: 2013Q3

REPORT INFORMATION
  Report Type: Spontaneous
  Country: US (occurrence: US)
  Receive Date: 20130828
  Receipt Date: 20130828
  Transmission Date: 20140515
  Serious: Yes (Hospitalization)
  Sender: FDA-Public Use
  Company Number: US-AMGEN-KDL167040

PATIENT
  Age: 52 Year
  Sex: Female

DRUGS (2)
  1. ENBREL [Suspect]
     Indication: RHEUMATOID ARTHRITIS
     Dosage: 50 MG, QWK
     Route: 058
     Dates: start: 20050225
  2. METHOTREXATE [Concomitant]

REACTIONS (6)
  - Obesity [Unknown]
  - Hepatomegaly [Unknown]
  - Postoperative abscess [Unknown]
  - Rheumatoid arthritis [Unknown]
  - Condition aggravated [Unknown]
  - Dry skin [Unknown]
